FAERS Safety Report 19421605 (Version 2)
Quarter: 2021Q2

REPORT INFORMATION
  Report Type: Spontaneous
  Country: US (occurrence: US)
  Receive Date: 20210615
  Receipt Date: 20210616
  Transmission Date: 20210717
  Serious: Yes (Death, Hospitalization, Other)
  Sender: FDA-Public Use
  Company Number: US-CELGENEUS-USA-20210603449

PATIENT
  Age: 78 Year
  Sex: Male

DRUGS (1)
  1. REVLIMID [Suspect]
     Active Substance: LENALIDOMIDE
     Indication: PLASMA CELL MYELOMA
     Dosage: 25 MILLIGRAM
     Route: 048
     Dates: start: 20200519, end: 20210405

REACTIONS (10)
  - Thrombocytopenia [Unknown]
  - Death [Fatal]
  - Cardiac failure [Unknown]
  - Tumour lysis syndrome [Unknown]
  - Haemorrhage urinary tract [Unknown]
  - Hypoxia [Unknown]
  - Anaemia [Unknown]
  - Pulmonary haemorrhage [Unknown]
  - Skin haemorrhage [Unknown]
  - Gastrointestinal haemorrhage [Unknown]

NARRATIVE: CASE EVENT DATE: 202105
